FAERS Safety Report 9263439 (Version 1)
Quarter: 2013Q2

REPORT INFORMATION
  Report Type: Spontaneous
  Country: US (occurrence: US)
  Receive Date: 20130430
  Receipt Date: 20130430
  Transmission Date: 20140414
  Serious: No
  Sender: FDA-Public Use
  Company Number: US-ABBOTT-12P-163-0971171-00

PATIENT
  Sex: Female

DRUGS (1)
  1. CREON 24 [Suspect]
     Indication: PANCREATIC INSUFFICIENCY
     Dosage: 3-4 CAPS WITH MAIN MEAL AND 2 WITH SNACK
     Dates: start: 2012

REACTIONS (1)
  - Arthralgia [Not Recovered/Not Resolved]
